FAERS Safety Report 23284060 (Version 3)
Quarter: 2024Q3

REPORT INFORMATION
  Report Type: Report from Study
  Country: US (occurrence: US)
  Receive Date: 20231211
  Receipt Date: 20240729
  Transmission Date: 20241016
  Serious: Yes (Hospitalization)
  Sender: ARGENX BVBA
  Company Number: US-ARGENX-2023-ARGX-US003301

PATIENT

DRUGS (2)
  1. EFGARTIGIMOD ALFA-FCAB [Suspect]
     Active Substance: EFGARTIGIMOD ALFA-FCAB
     Indication: Myasthenia gravis
     Dosage: 10 MG/KG
     Route: 042
     Dates: start: 20230801, end: 202308
  2. EFGARTIGIMOD ALFA-FCAB [Suspect]
     Active Substance: EFGARTIGIMOD ALFA-FCAB
     Dosage: 10 MG/KG, RESTARTED
     Route: 042
     Dates: start: 20240724

REACTIONS (9)
  - Post procedural infection [Recovering/Resolving]
  - Granuloma [Unknown]
  - Muscle spasms [Unknown]
  - Dehydration [Unknown]
  - Diplopia [Recovering/Resolving]
  - Eyelid ptosis [Unknown]
  - Fatigue [Unknown]
  - Muscular weakness [Unknown]
  - Eyelid ptosis [Recovered/Resolved]
